FAERS Safety Report 18585265 (Version 1)
Quarter: 2020Q4

REPORT INFORMATION
  Report Type: Spontaneous
  Country: US (occurrence: US)
  Receive Date: 20201204
  Receipt Date: 20201204
  Transmission Date: 20210114
  Serious: Yes (Other)
  Sender: FDA-Public Use
  Company Number: None

PATIENT
  Sex: Female

DRUGS (2)
  1. PANTOPRAZOLE SODIUM 40 MG [Suspect]
     Active Substance: PANTOPRAZOLE SODIUM
  2. ESOMEPRAZOLE MAGNESIUM 40 MG [Suspect]
     Active Substance: ESOMEPRAZOLE MAGNESIUM

REACTIONS (1)
  - Drug ineffective [None]
